FAERS Safety Report 7969457-3 (Version None)
Quarter: 2011Q4

REPORT INFORMATION
  Report Type: 
  Country: None (occurrence: None)
  Receive Date: 20111212
  Receipt Date: 20111201
  Transmission Date: 20120403
  Serious: Yes (Hospitalization)
  Sender: FDA-Public Use
  Company Number: US-BIOGENIDEC-2011BI034974

PATIENT
  Age: 43 Year
  Sex: Female

DRUGS (2)
  1. FINGOLIMOD [Concomitant]
  2. TYSABRI [Suspect]
     Indication: MULTIPLE SCLEROSIS
     Route: 042
     Dates: start: 20090220, end: 20110408

REACTIONS (1)
  - MULTIPLE SCLEROSIS RELAPSE [None]
